FAERS Safety Report 9303311 (Version 1)
Quarter: 2013Q2

REPORT INFORMATION
  Report Type: Spontaneous
  Country: US (occurrence: None)
  Receive Date: 20130521
  Receipt Date: 20130521
  Transmission Date: 20140414
  Serious: Yes (Hospitalization)
  Sender: FDA-Public Use
  Company Number: None

PATIENT
  Age: 82 Year
  Sex: Female
  Weight: 83.46 kg

DRUGS (1)
  1. PRADAXA [Suspect]
     Indication: MYOCARDIAL INFARCTION
     Dates: start: 20130201, end: 20130424

REACTIONS (2)
  - Middle insomnia [None]
  - Haemorrhage [None]
